FAERS Safety Report 24341099 (Version 1)
Quarter: 2024Q3

REPORT INFORMATION
  Report Type: Spontaneous
  Country: CN (occurrence: CN)
  Receive Date: 20240919
  Receipt Date: 20240919
  Transmission Date: 20241017
  Serious: Yes (Hospitalization)
  Sender: AMGEN
  Company Number: CN-AMGEN-CHNSP2024184398

PATIENT

DRUGS (3)
  1. REPATHA [Suspect]
     Active Substance: EVOLOCUMAB
     Indication: Cardiac failure chronic
     Dosage: 140 MILLIGRAM, Q2WK
     Route: 058
  2. REPATHA [Suspect]
     Active Substance: EVOLOCUMAB
     Indication: Hyperlipidaemia
  3. DIGOXIN [Concomitant]
     Active Substance: DIGOXIN
     Indication: Cardiac failure chronic
     Dosage: UNK
     Route: 065

REACTIONS (9)
  - Acute myocardial infarction [Unknown]
  - Cardiac failure [Unknown]
  - Abdominal pain [Unknown]
  - Angina pectoris [Unknown]
  - Arrhythmia [Unknown]
  - Drug ineffective [Unknown]
  - Abdominal discomfort [Unknown]
  - Myalgia [Unknown]
  - Headache [Unknown]
